FAERS Safety Report 13935446 (Version 1)
Quarter: 2017Q3

REPORT INFORMATION
  Report Type: Spontaneous
  Country: US (occurrence: US)
  Receive Date: 20170901
  Receipt Date: 20170901
  Transmission Date: 20171127
  Serious: No
  Sender: FDA-Public Use
  Company Number: None

PATIENT
  Age: 21 Year
  Sex: Female
  Weight: 76.5 kg

DRUGS (1)
  1. REMICADE [Suspect]
     Active Substance: INFLIXIMAB

REACTIONS (5)
  - Dyspnoea [None]
  - Nausea [None]
  - Chest discomfort [None]
  - Flushing [None]
  - Infusion related reaction [None]

NARRATIVE: CASE EVENT DATE: 20170831
